FAERS Safety Report 10050268 (Version 1)
Quarter: 2014Q1

REPORT INFORMATION
  Report Type: Spontaneous
  Country: US (occurrence: None)
  Receive Date: 20140331
  Receipt Date: 20140331
  Transmission Date: 20141002
  Serious: Yes (Disabling)
  Sender: FDA-Public Use
  Company Number: None

PATIENT
  Age: 63 Year
  Sex: 0

DRUGS (1)
  1. PRAVASTATIN [Suspect]
     Indication: BLOOD CHOLESTEROL INCREASED
     Dosage: 1  -- TAKEN BY MOUTH
     Route: 048
     Dates: start: 20140303, end: 20140327

REACTIONS (4)
  - Muscle spasms [None]
  - Muscular weakness [None]
  - CSF protein increased [None]
  - Insomnia [None]
